FAERS Safety Report 6859986-8 (Version None)
Quarter: 2010Q3

REPORT INFORMATION
  Report Type: 
  Country: None (occurrence: None)
  Receive Date: 20100720
  Receipt Date: 20100709
  Transmission Date: 20110219
  Serious: Yes (Hospitalization, Other)
  Sender: FDA-Public Use
  Company Number: NZ-NOVOPROD-306099

PATIENT
  Sex: Female

DRUGS (2)
  1. NOVORAPID PENFILL [Suspect]
     Indication: GESTATIONAL DIABETES
     Dosage: 4 IU, TID
     Route: 058
     Dates: start: 20100323, end: 20100324
  2. PROTAPHANE [Concomitant]
     Indication: GESTATIONAL DIABETES
     Dosage: 8 U, QD
     Route: 058
     Dates: start: 20100323, end: 20100508

REACTIONS (4)
  - BLOOD PRESSURE INCREASED [None]
  - DRUG EXPOSURE DURING PREGNANCY [None]
  - PALPITATIONS [None]
  - TACHYCARDIA [None]
